FAERS Safety Report 25585714 (Version 1)
Quarter: 2025Q3

REPORT INFORMATION
  Report Type: Spontaneous
  Country: AU (occurrence: AU)
  Receive Date: 20250721
  Receipt Date: 20250721
  Transmission Date: 20251021
  Serious: Yes (Death, Hospitalization)
  Sender: PFIZER
  Company Number: AU-PFIZER INC-202500144086

PATIENT
  Age: 98 Year
  Sex: Male

DRUGS (1)
  1. PAXLOVID [Suspect]
     Active Substance: NIRMATRELVIR\RITONAVIR
     Indication: COVID-19 treatment
     Dosage: 1X/DAY (TOOK 2 OR 3 DOSES)

REACTIONS (2)
  - COVID-19 [Fatal]
  - Off label use [Unknown]
